FAERS Safety Report 5122086-1 (Version None)
Quarter: 2006Q4

REPORT INFORMATION
  Report Type: 
  Country: None (occurrence: None)
  Receive Date: 20061006
  Receipt Date: 20060816
  Transmission Date: 20070319
  Serious: Yes (Disabling)
  Sender: FDA-Public Use
  Company Number: 2006SE04988

PATIENT
  Age: 26332 Day
  Sex: Male
  Weight: 90 kg

DRUGS (2)
  1. SELOZOK [Suspect]
     Indication: ATRIAL FIBRILLATION
     Route: 048
     Dates: start: 20060218
  2. MAREVAN [Concomitant]
     Indication: INTERNATIONAL NORMALISED RATIO
     Dates: start: 20060218

REACTIONS (3)
  - ABDOMINAL PAIN UPPER [None]
  - ERUCTATION [None]
  - OESOPHAGEAL PAIN [None]
